FAERS Safety Report 4898075-9 (Version None)
Quarter: 2006Q1

REPORT INFORMATION
  Report Type: 
  Country: None (occurrence: None)
  Receive Date: 20060130
  Receipt Date: 20060118
  Transmission Date: 20060701
  Serious: Yes (Other)
  Sender: FDA-Public Use
  Company Number: US016495

PATIENT
  Age: 25 Year
  Sex: Female

DRUGS (5)
  1. GABITRIL [Suspect]
     Dosage: 8 MG TID ORAL
     Route: 048
  2. PHENYTOIN [Concomitant]
  3. CLONAZEPAM [Concomitant]
  4. FLUOXETINE [Concomitant]
  5. SEROQUEL [Concomitant]

REACTIONS (7)
  - CONFUSIONAL STATE [None]
  - COORDINATION ABNORMAL [None]
  - DISEASE RECURRENCE [None]
  - DISSOCIATION [None]
  - ENCEPHALOPATHY [None]
  - MUSCLE TWITCHING [None]
  - SPEECH DISORDER [None]
